FAERS Safety Report 8373245-6 (Version None)
Quarter: 2012Q2

REPORT INFORMATION
  Report Type: 
  Country: None (occurrence: None)
  Receive Date: 20120521
  Receipt Date: 20120507
  Transmission Date: 20120825
  Serious: No
  Sender: FDA-Public Use
  Company Number: US-ASTRAZENECA-2011SE21721

PATIENT
  Age: 43 Year
  Sex: Female

DRUGS (2)
  1. SEROQUEL [Suspect]
     Route: 048
  2. SEROQUEL [Suspect]
     Dosage: TAKES ONE TABLET PER DAY INSTEAD OF TWO
     Route: 048

REACTIONS (2)
  - INTENTIONAL DRUG MISUSE [None]
  - FEELING ABNORMAL [None]
